FAERS Safety Report 5673958-0 (Version None)
Quarter: 2008Q1

REPORT INFORMATION
  Report Type: 
  Country: None (occurrence: None)
  Receive Date: 20080319
  Receipt Date: 20080319
  Transmission Date: 20080703
  Serious: Yes (Death)
  Sender: FDA-Public Use
  Company Number: None

PATIENT
  Age: 78 Year
  Sex: Female
  Weight: 72.5755 kg

DRUGS (1)
  1. DURAGESIC-50 [Suspect]
     Indication: PAIN MANAGEMENT
     Dosage: 50MCG EVERY 72HRS EPIDURAL
     Route: 008
     Dates: start: 20080221, end: 20080228

REACTIONS (6)
  - COMA [None]
  - EUTHANASIA [None]
  - GENERAL PHYSICAL HEALTH DETERIORATION [None]
  - MEDICATION ERROR [None]
  - MULTI-ORGAN FAILURE [None]
  - OVERDOSE [None]
